FAERS Safety Report 7941353-7 (Version None)
Quarter: 2011Q4

REPORT INFORMATION
  Report Type: 
  Country: None (occurrence: None)
  Receive Date: 20111128
  Receipt Date: 20111116
  Transmission Date: 20120403
  Serious: Yes (Other)
  Sender: FDA-Public Use
  Company Number: US-BAYER-2011-054815

PATIENT
  Age: 27 Year
  Sex: Female
  Weight: 48.526 kg

DRUGS (2)
  1. YAZ [Suspect]
     Indication: ORAL CONTRACEPTION
     Dosage: UNK
     Dates: start: 20081201, end: 20110101
  2. LEVAQUIN [Concomitant]

REACTIONS (2)
  - GALLBLADDER DISORDER [None]
  - BILIARY DYSKINESIA [None]
